FAERS Safety Report 6846238-5 (Version None)
Quarter: 2010Q3

REPORT INFORMATION
  Report Type: 
  Country: None (occurrence: None)
  Receive Date: 20100715
  Receipt Date: 20070915
  Transmission Date: 20110219
  Serious: No
  Sender: FDA-Public Use
  Company Number: US-PFIZER INC-2007077742

PATIENT
  Sex: Female

DRUGS (4)
  1. CHANTIX [Suspect]
     Indication: SMOKING CESSATION THERAPY
     Route: 048
     Dates: start: 20070911
  2. TRICOR [Concomitant]
  3. LEVOTHYROXINE SODIUM [Concomitant]
  4. PROTONIX [Concomitant]

REACTIONS (2)
  - CHILLS [None]
  - VOMITING [None]
